FAERS Safety Report 19805210 (Version 1)
Quarter: 2021Q3

REPORT INFORMATION
  Report Type: Spontaneous
  Country: TR (occurrence: TR)
  Receive Date: 20210908
  Receipt Date: 20210908
  Transmission Date: 20211014
  Serious: Yes (Other)
  Sender: FDA-Public Use
  Company Number: TR-HQ SPECIALTY-TR-2021INT000155

PATIENT
  Age: 47 Year
  Sex: Female

DRUGS (6)
  1. CISPLATIN. [Suspect]
     Active Substance: CISPLATIN
     Indication: ADENOCARCINOMA GASTRIC
     Dosage: UNK (FIRST COURSE)
     Route: 065
  2. CISPLATIN. [Suspect]
     Active Substance: CISPLATIN
     Dosage: UNK (SECOND COURSE)
     Route: 065
  3. FLUOROURACIL. [Suspect]
     Active Substance: FLUOROURACIL
     Dosage: UNK (THIRD COURSE)
     Route: 065
  4. FLUOROURACIL. [Suspect]
     Active Substance: FLUOROURACIL
     Dosage: UNK (SECOND COURSE)
     Route: 065
  5. CISPLATIN. [Suspect]
     Active Substance: CISPLATIN
     Dosage: UNK (THIRD COURSE)
     Route: 065
  6. FLUOROURACIL. [Suspect]
     Active Substance: FLUOROURACIL
     Indication: ADENOCARCINOMA GASTRIC
     Dosage: UNK (FIRST COURSE)
     Route: 065

REACTIONS (2)
  - Retroperitoneal abscess [Recovered/Resolved]
  - Fistula of small intestine [Recovered/Resolved]
